FAERS Safety Report 15753612 (Version 1)
Quarter: 2018Q4

REPORT INFORMATION
  Report Type: Spontaneous
  Country: US (occurrence: US)
  Receive Date: 20181222
  Receipt Date: 20181222
  Transmission Date: 20190205
  Serious: No
  Sender: FDA-Public Use
  Company Number: US-BAYER-2018-237915

PATIENT
  Age: 16 Year
  Sex: Female
  Weight: 41 kg

DRUGS (1)
  1. MIRALAX [Suspect]
     Active Substance: POLYETHYLENE GLYCOL 3350
     Indication: FAECALOMA
     Route: 048
     Dates: start: 20181216, end: 20181217

REACTIONS (5)
  - Product use in unapproved indication [Unknown]
  - Rash [Unknown]
  - Product prescribing error [Unknown]
  - Off label use [Unknown]
  - Product use issue [Unknown]

NARRATIVE: CASE EVENT DATE: 201812
